FAERS Safety Report 13431363 (Version 2)
Quarter: 2017Q3

REPORT INFORMATION
  Report Type: Report from Study
  Country: None (occurrence: US)
  Receive Date: 20170412
  Receipt Date: 20170904
  Transmission Date: 20171127
  Serious: Yes (Other)
  Sender: FDA-Public Use
  Company Number: US-ABBVIE-17K-163-1937985-00

PATIENT
  Age: 43 Year
  Sex: Female

DRUGS (11)
  1. CLOBETASOL [Concomitant]
     Active Substance: CLOBETASOL
     Indication: PRODUCT USED FOR UNKNOWN INDICATION
  2. WELLBUTRIN [Concomitant]
     Active Substance: BUPROPION HYDROCHLORIDE
     Indication: PRODUCT USED FOR UNKNOWN INDICATION
  3. KLONOPIN [Concomitant]
     Active Substance: CLONAZEPAM
     Indication: PRODUCT USED FOR UNKNOWN INDICATION
  4. ADDERALL [Concomitant]
     Active Substance: AMPHETAMINE ASPARTATE\AMPHETAMINE SULFATE\DEXTROAMPHETAMINE SACCHARATE\DEXTROAMPHETAMINE SULFATE
     Indication: PRODUCT USED FOR UNKNOWN INDICATION
  5. LEXAPRO [Concomitant]
     Active Substance: ESCITALOPRAM OXALATE
     Indication: PRODUCT USED FOR UNKNOWN INDICATION
  6. LATUDA [Concomitant]
     Active Substance: LURASIDONE HYDROCHLORIDE
     Indication: PRODUCT USED FOR UNKNOWN INDICATION
  7. HUMIRA [Suspect]
     Active Substance: ADALIMUMAB
     Route: 058
     Dates: end: 201611
  8. ISOTRETINOIN [Concomitant]
     Active Substance: ISOTRETINOIN
     Indication: PRODUCT USED FOR UNKNOWN INDICATION
  9. MINOCYCLINE [Concomitant]
     Active Substance: MINOCYCLINE\MINOCYCLINE HYDROCHLORIDE
     Indication: PRODUCT USED FOR UNKNOWN INDICATION
  10. KENALOG [Concomitant]
     Active Substance: TRIAMCINOLONE ACETONIDE
     Indication: PRODUCT USED FOR UNKNOWN INDICATION
  11. HUMIRA [Suspect]
     Active Substance: ADALIMUMAB
     Indication: HIDRADENITIS
     Route: 058

REACTIONS (3)
  - Dermal cyst [Recovered/Resolved]
  - Dermal cyst [Unknown]
  - Dermal cyst [Unknown]

NARRATIVE: CASE EVENT DATE: 201603
